FAERS Safety Report 9246890 (Version 1)
Quarter: 2013Q2

REPORT INFORMATION
  Report Type: Spontaneous
  Country: US (occurrence: US)
  Receive Date: 20130422
  Receipt Date: 20130422
  Transmission Date: 20140414
  Serious: Yes (Hospitalization)
  Sender: FDA-Public Use
  Company Number: US-ABBOTT-13P-163-1064127-00

PATIENT
  Age: 11 Year
  Sex: Male
  Weight: 47.22 kg

DRUGS (6)
  1. LUPRON DEPOT-PED (3 MONTH) [Suspect]
     Indication: PRECOCIOUS PUBERTY
     Route: 030
     Dates: start: 20121101, end: 20130222
  2. PRILOSEC [Concomitant]
     Indication: DYSPEPSIA
     Dates: start: 20130313
  3. PRILOSEC [Concomitant]
     Indication: CHEST PAIN
  4. CONCERTA [Concomitant]
     Indication: ATTENTION DEFICIT/HYPERACTIVITY DISORDER
  5. INTUNIV [Concomitant]
     Indication: ATTENTION DEFICIT/HYPERACTIVITY DISORDER
  6. MELATONIN [Concomitant]
     Indication: SLEEP DISORDER

REACTIONS (7)
  - Injection site abscess [Recovering/Resolving]
  - Injection site pustule [Recovered/Resolved]
  - Pharyngitis streptococcal [Recovered/Resolved]
  - Laryngitis [Recovered/Resolved]
  - Chest pain [Recovering/Resolving]
  - Dyspepsia [Recovering/Resolving]
  - Abdominal pain [Recovering/Resolving]
